FAERS Safety Report 8357832-7 (Version None)
Quarter: 2012Q2

REPORT INFORMATION
  Report Type: 
  Country: None (occurrence: None)
  Receive Date: 20120514
  Receipt Date: 20110819
  Transmission Date: 20120825
  Serious: No
  Sender: FDA-Public Use
  Company Number: US-TEVA-2011004381

PATIENT
  Sex: Female
  Weight: 72.64 kg

DRUGS (2)
  1. NUVIGIL [Suspect]
     Indication: NARCOLEPSY
     Dosage: 75 MILLIGRAM;
     Route: 048
     Dates: start: 20110724
  2. NUVIGIL [Suspect]
     Dosage: 150 MILLIGRAM;
     Route: 048
     Dates: start: 20110801, end: 20110802

REACTIONS (2)
  - FATIGUE [None]
  - DRUG TOLERANCE [None]
